FAERS Safety Report 7075635-0 (Version None)
Quarter: 2010Q4

REPORT INFORMATION
  Report Type: 
  Country: None (occurrence: None)
  Receive Date: 20101030
  Receipt Date: 20101021
  Transmission Date: 20110411
  Serious: No
  Sender: FDA-Public Use
  Company Number: US-WYE-H18326410

PATIENT
  Age: 32 Year
  Sex: Female
  Weight: 59.02 kg

DRUGS (1)
  1. PRISTIQ [Suspect]
     Indication: DEPRESSION
     Dates: start: 20100101

REACTIONS (2)
  - DRUG WITHDRAWAL SYNDROME [None]
  - FEELING ABNORMAL [None]
